FAERS Safety Report 10933981 (Version 1)
Quarter: 2015Q1

REPORT INFORMATION
  Report Type: Report from Study
  Country: DE (occurrence: DE)
  Receive Date: 20150320
  Receipt Date: 20150320
  Transmission Date: 20150721
  Serious: Yes (Hospitalization)
  Sender: FDA-Public Use
  Company Number: DE-GILEAD-2015-0142486

PATIENT
  Age: 45 Year
  Sex: Male
  Weight: 50 kg

DRUGS (15)
  1. FALITHROM [Concomitant]
     Active Substance: PHENPROCOUMON
     Indication: PRODUCT USED FOR UNKNOWN INDICATION
     Route: 065
  2. VITAMIN B DUO [Concomitant]
  3. BARACLUDE [Concomitant]
     Active Substance: ENTECAVIR
     Dosage: 0.5 MG, UNK
  4. ISOZID [Concomitant]
     Active Substance: ISONIAZID
     Dosage: 200 MG, UNK
     Dates: start: 20141007
  5. PANTOZOL [Concomitant]
     Active Substance: PANTOPRAZOLE SODIUM
     Dosage: 40 MG, UNK
     Dates: start: 20141007
  6. MIRCERA [Concomitant]
     Active Substance: PEGZEREPOETIN ALFA
     Dosage: 150 ?G, UNK
     Dates: start: 20141007
  7. ETHAMBUTOL [Concomitant]
     Active Substance: ETHAMBUTOL HYDROCHLORIDE
     Dosage: 750 MG, UNK
     Dates: start: 20141007
  8. PYRAZINAMID [Concomitant]
     Dosage: 1250 MG, UNK
     Dates: start: 20141007
  9. PREDNISOLONE. [Concomitant]
     Active Substance: PREDNISOLONE
     Dosage: 5 MG, UNK
  10. L-THYROXIN [Concomitant]
     Active Substance: LEVOTHYROXINE SODIUM
     Dosage: 125 ?G, UNK
  11. COPEGUS [Suspect]
     Active Substance: RIBAVIRIN
     Indication: CHRONIC HEPATITIS C
     Dosage: 800 MG, UNK
     Route: 048
     Dates: start: 20140926
  12. SANDIMMUNE [Concomitant]
     Active Substance: CYCLOSPORINE
     Dosage: 60 MG, UNK
  13. SOFOSBUVIR [Suspect]
     Active Substance: SOFOSBUVIR
     Indication: CHRONIC HEPATITIS C
     Dosage: 400 MG, QD
     Route: 048
     Dates: start: 20140926
  14. RIFAMPICIN [Suspect]
     Active Substance: RIFAMPIN
     Indication: TUBERCULOSIS
     Dosage: 450 MG, UNK
     Route: 048
     Dates: start: 20141007
  15. BISOPROLOL [Concomitant]
     Active Substance: BISOPROLOL
     Dosage: 5 MG, UNK
     Dates: start: 20061101

REACTIONS (2)
  - Drug interaction [Recovered/Resolved]
  - Underdose [Recovered/Resolved]

NARRATIVE: CASE EVENT DATE: 20150121
